FAERS Safety Report 5777317-1 (Version None)
Quarter: 2008Q2

REPORT INFORMATION
  Report Type: 
  Country: None (occurrence: None)
  Receive Date: 20080618
  Receipt Date: 20080611
  Transmission Date: 20081010
  Serious: Yes (Life-Threatening)
  Sender: FDA-Public Use
  Company Number: PHHY2008GB10498

PATIENT

DRUGS (4)
  1. ZOLEDRONIC ACID [Suspect]
     Indication: HYPERCALCAEMIA
     Dosage: 4 MG
     Route: 042
     Dates: start: 20080411, end: 20080411
  2. BUSCOPAN [Concomitant]
     Dosage: 10 MG
     Route: 048
  3. ACETAMINOPHEN W/ CODEINE [Concomitant]
     Dosage: 10 MG
     Route: 048
  4. METOCLOPRAMIDE [Concomitant]
     Dosage: 10 MG
     Route: 048

REACTIONS (5)
  - AGGRESSION [None]
  - BALANCE DISORDER [None]
  - CONFUSIONAL STATE [None]
  - INCONTINENCE [None]
  - MALAISE [None]
